FAERS Safety Report 14309912 (Version 2)
Quarter: 2017Q4

REPORT INFORMATION
  Report Type: Spontaneous
  Country: FR (occurrence: FR)
  Receive Date: 20171220
  Receipt Date: 20171228
  Transmission Date: 20180321
  Serious: Yes (Other)
  Sender: FDA-Public Use
  Company Number: FR-PFIZER INC-2017535759

PATIENT
  Age: 61 Year
  Sex: Female
  Weight: 90 kg

DRUGS (3)
  1. AMOXICILLINE TEVA [Suspect]
     Active Substance: AMOXICILLIN
     Indication: HELICOBACTER INFECTION
     Dosage: 2 G, 1X/DAY
     Route: 048
     Dates: start: 20171117, end: 20171122
  2. LEVOFLOXACIN MYLAN [Suspect]
     Active Substance: LEVOFLOXACIN
     Indication: HELICOBACTER INFECTION
     Dosage: 500 MG, 1X/DAY
     Route: 048
     Dates: start: 20171117, end: 20171122
  3. ANSATIPINE [Suspect]
     Active Substance: RIFABUTIN
     Indication: HELICOBACTER INFECTION
     Dosage: 300 MG, 1X/DAY
     Route: 048
     Dates: start: 20171117, end: 20171122

REACTIONS (5)
  - Urticaria [Not Recovered/Not Resolved]
  - Arthralgia [Not Recovered/Not Resolved]
  - Myalgia [Not Recovered/Not Resolved]
  - Visual impairment [Not Recovered/Not Resolved]
  - Oedema [Not Recovered/Not Resolved]

NARRATIVE: CASE EVENT DATE: 201711
